FAERS Safety Report 9887295 (Version 1)
Quarter: 2014Q1

REPORT INFORMATION
  Report Type: Spontaneous
  Country: US (occurrence: US)
  Receive Date: 20140211
  Receipt Date: 20140211
  Transmission Date: 20141002
  Serious: No
  Sender: FDA-Public Use
  Company Number: US-BIOGENIDEC-2014BI010604

PATIENT
  Age: 36 Year
  Sex: Female

DRUGS (1)
  1. TECFIDERA [Suspect]
     Indication: MULTIPLE SCLEROSIS
     Dates: start: 20140108

REACTIONS (5)
  - Gastric disorder [Not Recovered/Not Resolved]
  - Dizziness [Not Recovered/Not Resolved]
  - General symptom [Not Recovered/Not Resolved]
  - Middle insomnia [Not Recovered/Not Resolved]
  - Diarrhoea [Not Recovered/Not Resolved]
